FAERS Safety Report 14525428 (Version 1)
Quarter: 2018Q1

REPORT INFORMATION
  Report Type: Report from Study
  Country: US (occurrence: US)
  Receive Date: 20180213
  Receipt Date: 20180213
  Transmission Date: 20180509
  Serious: Yes (Other)
  Sender: FDA-Public Use
  Company Number: US-TEVA-2018-US-857778

PATIENT
  Age: 47 Year
  Sex: Male
  Weight: 94.8 kg

DRUGS (3)
  1. CERUBIDINE [Suspect]
     Active Substance: DAUNORUBICIN HYDROCHLORIDE
     Indication: ACUTE MYELOID LEUKAEMIA
     Dosage: 60 MG/M2, DAYS 1-3;
     Route: 042
     Dates: start: 20100716, end: 20100718
  2. CYTOSAR-U [Suspect]
     Active Substance: CYTARABINE
     Indication: ACUTE MYELOID LEUKAEMIA
     Dosage: 200 MICROGRAM DAILY; 200 MG/M2, DAYS 1-7
     Route: 065
     Dates: start: 20100716, end: 20100723
  3. MIDOSTAURIN [Suspect]
     Active Substance: MIDOSTAURIN
     Route: 065

REACTIONS (3)
  - Platelet count decreased [Unknown]
  - Blood fibrinogen decreased [Unknown]
  - Haemorrhage intracranial [Unknown]

NARRATIVE: CASE EVENT DATE: 20100714
